FAERS Safety Report 7748344-X (Version None)
Quarter: 2011Q3

REPORT INFORMATION
  Report Type: 
  Country: None (occurrence: None)
  Receive Date: 20110913
  Receipt Date: 20110906
  Transmission Date: 20111222
  Serious: Yes (Other)
  Sender: FDA-Public Use
  Company Number: PHEH2010US03494

PATIENT
  Sex: Male

DRUGS (6)
  1. TRELSTAR [Concomitant]
  2. LUPRON [Concomitant]
     Dates: start: 20100420
  3. NEULASTA [Concomitant]
     Dosage: 6 MG
     Route: 058
  4. TAXOTERE [Concomitant]
     Dosage: 140 MG,
  5. ZOMETA [Suspect]
     Dosage: 4 MG, MONTHLY
     Dates: start: 20060301, end: 20090301
  6. ALOXI [Concomitant]
     Dosage: 0.25 MG,

REACTIONS (22)
  - INTERVERTEBRAL DISC PROTRUSION [None]
  - DISABILITY [None]
  - ANHEDONIA [None]
  - PULMONARY EMBOLISM [None]
  - INJURY [None]
  - HILAR LYMPHADENOPATHY [None]
  - PARAESTHESIA [None]
  - PAIN IN EXTREMITY [None]
  - ROTATOR CUFF SYNDROME [None]
  - PAIN [None]
  - LYMPHADENOPATHY MEDIASTINAL [None]
  - OSTEOARTHRITIS [None]
  - INTERVERTEBRAL DISC DEGENERATION [None]
  - MUSCULOSKELETAL PAIN [None]
  - DYSPNOEA [None]
  - BACK PAIN [None]
  - PATHOLOGICAL FRACTURE [None]
  - OEDEMA PERIPHERAL [None]
  - CHEST PAIN [None]
  - OSTEONECROSIS OF JAW [None]
  - ANXIETY [None]
  - AORTIC ARTERIOSCLEROSIS [None]
